FAERS Safety Report 17576842 (Version 1)
Quarter: 2020Q1

REPORT INFORMATION
  Report Type: Spontaneous
  Country: US (occurrence: US)
  Receive Date: 20200324
  Receipt Date: 20200324
  Transmission Date: 20200409
  Serious: No
  Sender: FDA-Public Use
  Company Number: None

PATIENT
  Age: 78 Year
  Sex: Female
  Weight: 73 kg

DRUGS (3)
  1. FOSAPREPITANT [Suspect]
     Active Substance: FOSAPREPITANT
     Dosage: ?          OTHER FREQUENCY:Q 21 DAYS;?
     Route: 042
  2. FAMOTIDINE. [Suspect]
     Active Substance: FAMOTIDINE
     Dosage: ?          OTHER FREQUENCY:Q 21 DAYS;?
     Route: 042
  3. PACITAXEL [Suspect]
     Active Substance: PACLITAXEL

REACTIONS (1)
  - Neuropathy peripheral [None]
